FAERS Safety Report 18414599 (Version 5)
Quarter: 2022Q1

REPORT INFORMATION
  Report Type: Spontaneous
  Country: US (occurrence: US)
  Receive Date: 20201022
  Receipt Date: 20220210
  Transmission Date: 20220423
  Serious: Yes (Hospitalization)
  Sender: FDA-Public Use
  Company Number: US-GW PHARMA-202010USGW03570

PATIENT

DRUGS (1)
  1. EPIDIOLEX [Suspect]
     Active Substance: CANNABIDIOL
     Indication: Product used for unknown indication
     Dosage: 250 MILLIGRAM, BID
     Route: 048
     Dates: start: 20181214

REACTIONS (7)
  - Pericardial effusion [Unknown]
  - Pleural effusion [Unknown]
  - Viral infection [Unknown]
  - Aspiration [Unknown]
  - Oxygen saturation abnormal [Unknown]
  - Asthenia [Unknown]
  - Product supply issue [Unknown]

NARRATIVE: CASE EVENT DATE: 20201010
